FAERS Safety Report 6742135-4 (Version None)
Quarter: 2010Q2

REPORT INFORMATION
  Report Type: 
  Country: None (occurrence: None)
  Receive Date: 20100520
  Receipt Date: 20091013
  Transmission Date: 20101027
  Serious: Yes (Other)
  Sender: FDA-Public Use
  Company Number: 2006155356

PATIENT
  Age: 37 Year
  Sex: Female

DRUGS (14)
  1. DEPO-PROVERA [Suspect]
     Indication: CONTRACEPTION
     Dosage: INTRAMUSCULAR
     Route: 030
     Dates: start: 19940401, end: 20050501
  2. KEPPRA (LEVETIRAETAM) [Concomitant]
  3. XANAX [Concomitant]
  4. KLONOPIN [Concomitant]
  5. LIBRIUM [Concomitant]
  6. MAALOX (ALUMINUM  HYDROXIDE GEL, MAGNESIUM HYDROXIDE) [Concomitant]
  7. MYLANTA (ALUMINIUM HYDROXIDE GEL, DRIED, MAGNESIUM HYDROXIDE, SIMETICO [Concomitant]
  8. HYDROCORTONE [Concomitant]
  9. PREDNISONE TAB [Concomitant]
  10. PROZAC [Concomitant]
  11. PAXIL [Concomitant]
  12. VITAMIN B COMPLEX TAB [Concomitant]
  13. ASCORBIC ACID [Concomitant]
  14. VITAMIN C (ERGOCALCIFEROL) [Concomitant]

REACTIONS (2)
  - OSTEOPENIA [None]
  - OSTEOPOROSIS [None]
